FAERS Safety Report 19165734 (Version 7)
Quarter: 2022Q1

REPORT INFORMATION
  Report Type: Report from Study
  Country: US (occurrence: US)
  Receive Date: 20210421
  Receipt Date: 20220315
  Transmission Date: 20220423
  Serious: Yes (Hospitalization, Other)
  Sender: FDA-Public Use
  Company Number: US-TAKEDA-US201719287

PATIENT
  Sex: Female
  Weight: 138 kg

DRUGS (33)
  1. HUMAN C1-ESTERASE INHIBITOR [Suspect]
     Active Substance: HUMAN C1-ESTERASE INHIBITOR
     Indication: Immune system disorder
     Dosage: 2500 INTERNATIONAL UNIT
     Route: 042
     Dates: start: 20160714
  2. HUMAN C1-ESTERASE INHIBITOR [Suspect]
     Active Substance: HUMAN C1-ESTERASE INHIBITOR
     Indication: Immune system disorder
     Dosage: 2500 INTERNATIONAL UNIT
     Route: 042
     Dates: start: 20160714
  3. HUMAN C1-ESTERASE INHIBITOR [Suspect]
     Active Substance: HUMAN C1-ESTERASE INHIBITOR
     Indication: Immune system disorder
     Dosage: 2500 INTERNATIONAL UNIT
     Route: 042
     Dates: start: 20160714
  4. TAKHZYRO [Suspect]
     Active Substance: LANADELUMAB-FLYO
     Indication: Immune system disorder
     Dosage: 300 MILLIGRAM, Q2WEEKS
     Route: 058
     Dates: start: 20201022
  5. TAKHZYRO [Suspect]
     Active Substance: LANADELUMAB-FLYO
     Indication: Interstitial lung disease
  6. TAKHZYRO [Suspect]
     Active Substance: LANADELUMAB-FLYO
     Indication: Illness
  7. FIRAZYR [Suspect]
     Active Substance: ICATIBANT ACETATE
     Indication: Immune system disorder
     Dosage: UNK
     Route: 058
     Dates: start: 20160609
  8. FIRAZYR [Suspect]
     Active Substance: ICATIBANT ACETATE
     Indication: Immune system disorder
     Dosage: UNK
     Route: 058
     Dates: start: 20160609
  9. FIRAZYR [Suspect]
     Active Substance: ICATIBANT ACETATE
     Indication: Interstitial lung disease
     Dosage: 30 MILLIGRAM
     Route: 058
     Dates: start: 20160225
  10. FIRAZYR [Suspect]
     Active Substance: ICATIBANT ACETATE
     Indication: Interstitial lung disease
     Dosage: 30 MILLIGRAM
     Route: 058
     Dates: start: 20160225
  11. FIRAZYR [Suspect]
     Active Substance: ICATIBANT ACETATE
     Indication: Illness
  12. FIRAZYR [Suspect]
     Active Substance: ICATIBANT ACETATE
     Indication: Illness
  13. KALBITOR [Suspect]
     Active Substance: ECALLANTIDE
     Indication: Hereditary angioedema
     Dosage: 30 MILLIGRAM
     Route: 058
     Dates: start: 20161227
  14. HEPARIN [Concomitant]
     Active Substance: HEPARIN SODIUM
     Dosage: UNK
     Route: 065
  15. SODIUM CHLORIDE [Concomitant]
     Active Substance: SODIUM CHLORIDE
     Route: 065
  16. STERILE WATER [Concomitant]
     Active Substance: WATER
     Route: 065
  17. EPIPEN [Concomitant]
     Active Substance: EPINEPHRINE
     Route: 065
  18. DIPHENHYDRAMINE [Concomitant]
     Active Substance: DIPHENHYDRAMINE
     Route: 065
  19. DOXYCYCLINE [Concomitant]
     Active Substance: DOXYCYCLINE
     Dosage: UNK
     Route: 065
  20. OMEPRAZOLE [Concomitant]
     Active Substance: OMEPRAZOLE
     Dosage: UNK
     Route: 065
  21. TRANEXAMIC ACID [Concomitant]
     Active Substance: TRANEXAMIC ACID
     Route: 065
  22. SERTRALINE [Concomitant]
     Active Substance: SERTRALINE HYDROCHLORIDE
     Dosage: UNK
     Route: 065
  23. ORTHO MICRONOR [Concomitant]
     Active Substance: NORETHINDRONE
     Route: 065
  24. METOPROLOL SUCCINATE [Concomitant]
     Active Substance: METOPROLOL SUCCINATE
     Route: 065
  25. DICLOFENAC [Concomitant]
     Active Substance: DICLOFENAC
     Route: 065
  26. MIRENA [Concomitant]
     Active Substance: LEVONORGESTREL
     Route: 065
  27. BUSPIRONE HCL [Concomitant]
     Active Substance: BUSPIRONE HYDROCHLORIDE
     Route: 065
  28. LAMICTAL [Concomitant]
     Active Substance: LAMOTRIGINE
     Route: 065
  29. CALCIUM [Concomitant]
     Active Substance: CALCIUM
     Dosage: UNK
     Route: 065
  30. VITAMIN D3 [Concomitant]
     Active Substance: CHOLECALCIFEROL
     Dosage: UNK
     Route: 065
  31. MAGNESIUM [Concomitant]
     Active Substance: MAGNESIUM
     Dosage: UNK
     Route: 065
  32. DULOXETINE HYDROCHLORIDE [Concomitant]
     Active Substance: DULOXETINE HYDROCHLORIDE
     Dosage: UNK
     Route: 065
  33. Ashwagandha root [Concomitant]
     Dosage: UNK
     Route: 065

REACTIONS (4)
  - Vascular device infection [Unknown]
  - Hospitalisation [Unknown]
  - Hereditary angioedema [Not Recovered/Not Resolved]
  - Product dose omission issue [Unknown]
